FAERS Safety Report 15429964 (Version 1)
Quarter: 2018Q3

REPORT INFORMATION
  Report Type: Spontaneous
  Country: US (occurrence: US)
  Receive Date: 20180920
  Receipt Date: 20180920
  Transmission Date: 20181010
  Serious: Yes (Hospitalization)
  Sender: FDA-Public Use
  Company Number: None

PATIENT
  Age: 22 Month
  Sex: Female

DRUGS (11)
  1. VIGABATRIN. [Suspect]
     Active Substance: VIGABATRIN
     Indication: EPILEPSY
     Route: 048
     Dates: start: 20180828
  2. AFINITOR [Suspect]
     Active Substance: EVEROLIMUS
     Indication: MUSCLE SPASMS
     Route: 048
     Dates: start: 20180605
  3. ONDANSETRON [Concomitant]
     Active Substance: ONDANSETRON
  4. LEVETIRACETA [Concomitant]
  5. AFINITOR [Suspect]
     Active Substance: EVEROLIMUS
     Indication: EPILEPSY
     Route: 048
     Dates: start: 20180605
  6. SULFATRIM PD [Concomitant]
  7. CLONAZEPAM. [Concomitant]
     Active Substance: CLONAZEPAM
  8. DIASTAT [Concomitant]
     Active Substance: DIAZEPAM
  9. SMZ?TMP [Concomitant]
     Active Substance: SULFAMETHOXAZOLE\TRIMETHOPRIM
  10. KEPPRA [Concomitant]
     Active Substance: LEVETIRACETAM
  11. VIGABATRIN. [Suspect]
     Active Substance: VIGABATRIN
     Indication: MUSCLE SPASMS
     Route: 048
     Dates: start: 20180828

REACTIONS (4)
  - Jaw disorder [None]
  - Irritability [None]
  - Neoplasm [None]
  - Restlessness [None]

NARRATIVE: CASE EVENT DATE: 20180918
